FAERS Safety Report 8366567-6 (Version None)
Quarter: 2012Q1

REPORT INFORMATION
  Report Type: 
  Country: None (occurrence: None)
  Receive Date: 20120323
  Receipt Date: 20110408
  Transmission Date: 20120608
  Serious: Yes (Disabling)
  Sender: FDA-Public Use
  Company Number: 163-21880-11041161

PATIENT
  Age: 76 Year
  Sex: Male

DRUGS (4)
  1. VELCADE [Concomitant]
  2. DEXAMETHASONE [Concomitant]
  3. REVLIMID [Suspect]
     Indication: MULTIPLE MYELOMA
     Dosage: 25 MG, DAILY FOR 21 DAYS, PO
     Route: 048
     Dates: start: 20110210
  4. ZOMETA [Concomitant]

REACTIONS (4)
  - DECREASED APPETITE [None]
  - NAUSEA [None]
  - FATIGUE [None]
  - CONSTIPATION [None]
